FAERS Safety Report 12592667 (Version 9)
Quarter: 2024Q3

REPORT INFORMATION
  Report Type: Spontaneous
  Country: US (occurrence: US)
  Receive Date: 20160726
  Receipt Date: 20240723
  Transmission Date: 20241016
  Serious: No
  Sender: PFIZER
  Company Number: US-PFIZER INC-2016323247

PATIENT
  Age: 54 Year
  Sex: Female
  Weight: 90.72 kg

DRUGS (4)
  1. SOMATROPIN [Suspect]
     Active Substance: SOMATROPIN
     Indication: Hypopituitarism
     Dosage: 0.4 MG, ONCE DAILY (QD)
     Route: 058
     Dates: start: 201605
  2. SOMATROPIN [Suspect]
     Active Substance: SOMATROPIN
     Indication: Growth hormone deficiency
     Dosage: 0.6 MG, ONCE DAILY
     Route: 058
  3. SOMATROPIN [Suspect]
     Active Substance: SOMATROPIN
     Dosage: 0.6 MG, 1X/DAY (0.6MG INJECTED ONCE DAILY)
     Route: 058
     Dates: start: 2017
  4. SOMATROPIN [Suspect]
     Active Substance: SOMATROPIN
     Dosage: 0.6 MG, DAILY (0.6 MG SYRINGES)
     Route: 058

REACTIONS (5)
  - Fatigue [Recovering/Resolving]
  - Arthralgia [Unknown]
  - Fluid retention [Unknown]
  - Memory impairment [Recovering/Resolving]
  - Panic reaction [Unknown]

NARRATIVE: CASE EVENT DATE: 20160101
